FAERS Safety Report 18221535 (Version 1)
Quarter: 2020Q3

REPORT INFORMATION
  Report Type: Spontaneous
  Country: TW (occurrence: TW)
  Receive Date: 20200902
  Receipt Date: 20200902
  Transmission Date: 20201103
  Serious: Yes (Other)
  Sender: FDA-Public Use
  Company Number: TW-BAUSCH-BL-2020-025248

PATIENT
  Age: 45 Year
  Sex: Female

DRUGS (2)
  1. LUMICEF [Suspect]
     Active Substance: BRODALUMAB
     Indication: PSORIASIS
     Dosage: ON MAY 7TH, MAY 28TH, JUNE 13TH, JUNE 15TH, AND JUNE 18TH
     Route: 058
     Dates: start: 20200507, end: 20200825
  2. LUMICEF [Suspect]
     Active Substance: BRODALUMAB
     Indication: PUSTULAR PSORIASIS

REACTIONS (2)
  - Alopecia [Unknown]
  - Somnolence [Unknown]

NARRATIVE: CASE EVENT DATE: 20200613
